FAERS Safety Report 7692234-8 (Version None)
Quarter: 2011Q3

REPORT INFORMATION
  Report Type: 
  Country: None (occurrence: None)
  Receive Date: 20110818
  Receipt Date: 20110307
  Transmission Date: 20111222
  Serious: Yes (Hospitalization)
  Sender: FDA-Public Use
  Company Number: FR-BAXTER-2010BH026360

PATIENT
  Age: 84 Year
  Sex: Female
  Weight: 70 kg

DRUGS (2)
  1. FEIBA [Suspect]
     Indication: ACQUIRED HAEMOPHILIA
     Route: 065
  2. FEIBA [Suspect]
     Indication: ANTI FACTOR VIII ANTIBODY TEST
     Route: 065

REACTIONS (1)
  - ERYSIPELAS [None]
